FAERS Safety Report 5985177-9 (Version None)
Quarter: 2008Q4

REPORT INFORMATION
  Report Type: 
  Country: None (occurrence: None)
  Receive Date: 20081203
  Receipt Date: 20081120
  Transmission Date: 20090506
  Serious: Yes (Hospitalization)
  Sender: FDA-Public Use
  Company Number: 430019M08USA

PATIENT
  Age: 38 Year
  Sex: Female

DRUGS (5)
  1. NOVANTRONE [Suspect]
     Indication: MULTIPLE SCLEROSIS
     Dates: start: 20070728, end: 20080501
  2. BETASERON [Suspect]
     Indication: SECONDARY PROGRESSIVE MULTIPLE SCLEROSIS
     Dosage: 8 SUBCUTANEOUS, 8 SUBCUTANEOUS, 6 SUBCUTANEOUS
     Route: 058
     Dates: start: 20071014
  3. BETASERON [Suspect]
  4. TEGRETOL [Concomitant]
  5. LAMICTAL [Concomitant]

REACTIONS (10)
  - BLOOD COUNT ABNORMAL [None]
  - COMPLEX PARTIAL SEIZURES [None]
  - DEPRESSION [None]
  - FALL [None]
  - HYSTERECTOMY [None]
  - INJECTION SITE PAIN [None]
  - INSOMNIA [None]
  - MENOPAUSE [None]
  - MENORRHAGIA [None]
  - PAIN [None]
